FAERS Safety Report 14790938 (Version 4)
Quarter: 2018Q3

REPORT INFORMATION
  Report Type: Spontaneous
  Country: JP (occurrence: JP)
  Receive Date: 20180423
  Receipt Date: 20180817
  Transmission Date: 20181010
  Serious: Yes (Other)
  Sender: FDA-Public Use
  Company Number: JP-JNJFOC-20180422207

PATIENT
  Age: 4 Year
  Sex: Female

DRUGS (55)
  1. PENTASA [Concomitant]
     Active Substance: MESALAMINE
     Route: 048
     Dates: start: 20160106
  2. IMURAN [Concomitant]
     Active Substance: AZATHIOPRINE
     Route: 048
     Dates: start: 20161005
  3. BIOFERMIN [Concomitant]
     Active Substance: BACILLUS SUBTILIS\LACTOBACILLUS ACIDOPHILUS\STREPTOCOCCUS FAECAIS
     Route: 048
     Dates: start: 20160501, end: 20170704
  4. INTRALIPOS [Concomitant]
     Active Substance: SOYBEAN OIL
     Route: 041
     Dates: start: 20160817, end: 20160819
  5. INTRALIPOS [Concomitant]
     Active Substance: SOYBEAN OIL
     Route: 041
     Dates: start: 20170116, end: 20170117
  6. ISOTONIC SODIUM CHLORIDE SOLUTION [Concomitant]
     Active Substance: SODIUM CHLORIDE
     Dosage: 250 ML X 1, 50 ML X 1, 50 ML X 1
     Route: 041
     Dates: start: 20160705, end: 20160705
  7. MEIACT [Concomitant]
     Active Substance: CEFDITOREN PIVOXIL
     Route: 048
     Dates: start: 20160617, end: 20160619
  8. HEPAFLUSH [Concomitant]
     Active Substance: HEPARIN SODIUM
     Route: 042
     Dates: start: 20170306, end: 20170306
  9. HEPAFLUSH [Concomitant]
     Active Substance: HEPARIN SODIUM
     Route: 042
     Dates: start: 20170418, end: 20170418
  10. CARBOCISTEINE [Concomitant]
     Active Substance: CARBOCYSTEINE
     Route: 048
     Dates: start: 20161118, end: 20161125
  11. REMICADE [Suspect]
     Active Substance: INFLIXIMAB
     Indication: INFLAMMATORY BOWEL DISEASE
     Route: 042
     Dates: start: 201705
  12. MIYA?BM [Concomitant]
     Active Substance: CLOSTRIDIUM BUTYRICUM SPORES STRAIN M-55
     Route: 048
     Dates: start: 20160501
  13. INTRALIPOS [Concomitant]
     Active Substance: SOYBEAN OIL
     Route: 041
     Dates: start: 20170306, end: 20170308
  14. ISOTONIC SODIUM CHLORIDE SOLUTION [Concomitant]
     Active Substance: SODIUM CHLORIDE
     Dosage: 250 ML X 1, 50 ML X 1, 50 ML X 1
     Route: 041
     Dates: start: 20160607, end: 20160607
  15. SAXIZON [Concomitant]
     Active Substance: HYDROCORTISONE SODIUM SUCCINATE
     Route: 042
     Dates: start: 20160705, end: 20160705
  16. INFLUENZA HA VACCINE [Concomitant]
     Active Substance: INFLUENZA VIRUS VACCINE
     Route: 058
     Dates: start: 20161118, end: 20161118
  17. TULOBUTEROL [Concomitant]
     Active Substance: TULOBUTEROL
     Route: 061
     Dates: start: 20170614, end: 20170619
  18. HEPAFLUSH [Concomitant]
     Active Substance: HEPARIN SODIUM
     Route: 042
     Dates: start: 20160607, end: 20160607
  19. HEPAFLUSH [Concomitant]
     Active Substance: HEPARIN SODIUM
     Route: 042
     Dates: start: 20161118, end: 20161118
  20. REMICADE [Suspect]
     Active Substance: INFLIXIMAB
     Indication: INFLAMMATORY BOWEL DISEASE
     Route: 042
     Dates: start: 20160705
  21. REMICADE [Suspect]
     Active Substance: INFLIXIMAB
     Indication: INFLAMMATORY BOWEL DISEASE
     Route: 042
     Dates: start: 20161024
  22. INTRALIPOS [Concomitant]
     Active Substance: SOYBEAN OIL
     Route: 041
     Dates: start: 20161003, end: 20161005
  23. INTRALIPOS [Concomitant]
     Active Substance: SOYBEAN OIL
     Route: 041
     Dates: start: 20170418, end: 20170420
  24. SIMPLE SYRUP [Concomitant]
     Route: 048
     Dates: start: 20170307, end: 20170324
  25. CLARITHROMYCIN. [Concomitant]
     Active Substance: CLARITHROMYCIN
     Route: 048
     Dates: start: 20170614, end: 20170619
  26. REMICADE [Suspect]
     Active Substance: INFLIXIMAB
     Indication: INFLAMMATORY BOWEL DISEASE
     Route: 042
     Dates: start: 20161214
  27. URSO [Suspect]
     Active Substance: URSODIOL
     Indication: INFLAMMATORY BOWEL DISEASE
     Route: 065
     Dates: start: 20170318
  28. MESALAZINE [Concomitant]
     Active Substance: MESALAMINE
     Route: 048
     Dates: start: 20170314
  29. ELENTAL [Concomitant]
     Active Substance: AMINO ACIDS\CARBOHYDRATES\MINERALS\SOYBEAN OIL\VITAMINS
     Route: 048
     Dates: start: 20160106
  30. LANSOPRAZOLE. [Concomitant]
     Active Substance: LANSOPRAZOLE
     Route: 048
     Dates: start: 20160318
  31. MARZULENE?S [Concomitant]
     Active Substance: SODIUM GUALENATE
     Route: 048
     Dates: start: 20160411, end: 20170512
  32. INTRALIPOS [Concomitant]
     Active Substance: SOYBEAN OIL
     Route: 041
     Dates: start: 20160920, end: 20160922
  33. ISOTONIC SODIUM CHLORIDE SOLUTION [Concomitant]
     Active Substance: SODIUM CHLORIDE
     Dosage: 250 ML X 1, 50 ML X 1, 50 ML X 1
     Route: 041
     Dates: start: 20160524, end: 20160524
  34. HEPAFLUSH [Concomitant]
     Active Substance: HEPARIN SODIUM
     Route: 042
     Dates: start: 20170116, end: 20170116
  35. ZYRTEC [Concomitant]
     Active Substance: CETIRIZINE HYDROCHLORIDE
     Route: 048
     Dates: start: 20170512, end: 20170516
  36. RAVONAL [Concomitant]
     Active Substance: THIOPENTAL
     Route: 042
     Dates: start: 20170821, end: 20170821
  37. REMICADE [Suspect]
     Active Substance: INFLIXIMAB
     Indication: INFLAMMATORY BOWEL DISEASE
     Route: 042
     Dates: start: 20160524
  38. REMICADE [Suspect]
     Active Substance: INFLIXIMAB
     Indication: INFLAMMATORY BOWEL DISEASE
     Route: 042
     Dates: start: 20160607
  39. REMICADE [Suspect]
     Active Substance: INFLIXIMAB
     Indication: INFLAMMATORY BOWEL DISEASE
     Route: 042
     Dates: start: 20171024
  40. INTRALIPOS [Concomitant]
     Active Substance: SOYBEAN OIL
     Route: 041
     Dates: start: 20160607, end: 20160610
  41. INTRALIPOS [Concomitant]
     Active Substance: SOYBEAN OIL
     Route: 041
     Dates: start: 20170524, end: 20170524
  42. REMICADE [Suspect]
     Active Substance: INFLIXIMAB
     Indication: INFLAMMATORY BOWEL DISEASE
     Dosage: 10TH ADMINISTRATION
     Route: 042
     Dates: start: 20170719
  43. BIOLACTIS [Concomitant]
     Active Substance: LACTOBACILLUS CASEI
     Route: 048
     Dates: start: 20160501, end: 20170704
  44. INTRALIPOS [Concomitant]
     Active Substance: SOYBEAN OIL
     Route: 041
     Dates: start: 20160620, end: 20160622
  45. INTRALIPOS [Concomitant]
     Active Substance: SOYBEAN OIL
     Route: 041
     Dates: start: 20160705, end: 20160708
  46. INTRALIPOS [Concomitant]
     Active Substance: SOYBEAN OIL
     Route: 041
     Dates: start: 20161118, end: 20161119
  47. MEIACT [Concomitant]
     Active Substance: CEFDITOREN PIVOXIL
     Route: 048
     Dates: start: 20160601, end: 20160606
  48. JEBIK V [Concomitant]
     Route: 058
     Dates: start: 20170116, end: 20170116
  49. REMICADE [Suspect]
     Active Substance: INFLIXIMAB
     Indication: INFLAMMATORY BOWEL DISEASE
     Route: 042
     Dates: start: 20171212
  50. MESALAZINE [Concomitant]
     Active Substance: MESALAMINE
     Route: 048
     Dates: start: 201512
  51. INTRALIPOS [Concomitant]
     Active Substance: SOYBEAN OIL
     Route: 041
     Dates: start: 20160524, end: 20160527
  52. POLARAMINE [Concomitant]
     Active Substance: DEXCHLORPHENIRAMINE MALEATE
     Route: 042
     Dates: start: 20160705, end: 20160705
  53. L CARTIN FF [Concomitant]
     Active Substance: LEVOCARNITINE
     Route: 048
     Dates: start: 20160805
  54. GASMOTIN [Concomitant]
     Active Substance: MOSAPRIDE CITRATE
     Route: 048
     Dates: start: 20160922, end: 20180118
  55. AMBROXOL HYDROCHLORIDE [Concomitant]
     Active Substance: AMBROXOL HYDROCHLORIDE
     Route: 048
     Dates: start: 20170307, end: 20170324

REACTIONS (6)
  - Off label use [Unknown]
  - Diabetes insipidus [Recovering/Resolving]
  - Dwarfism [Recovering/Resolving]
  - Product use issue [Unknown]
  - Lymphocytic hypophysitis [Recovering/Resolving]
  - Growth hormone deficiency [Recovering/Resolving]

NARRATIVE: CASE EVENT DATE: 20170821
